FAERS Safety Report 6795973-6 (Version None)
Quarter: 2010Q2

REPORT INFORMATION
  Report Type: 
  Country: None (occurrence: None)
  Receive Date: 20100625
  Receipt Date: 20100617
  Transmission Date: 20101027
  Serious: Yes (Other)
  Sender: FDA-Public Use
  Company Number: B0662458A

PATIENT
  Age: 56 Year
  Sex: Male

DRUGS (6)
  1. CARVEDILOL [Suspect]
     Dosage: 6.25MG TWICE PER DAY
     Route: 048
     Dates: start: 20090901
  2. LASIX [Concomitant]
  3. ACCUPRON [Concomitant]
  4. SINTROM [Concomitant]
  5. INSPRA [Concomitant]
  6. ANGORON [Concomitant]

REACTIONS (1)
  - EJACULATION FAILURE [None]
